FAERS Safety Report 8049648 (Version 6)
Quarter: 2013Q1

REPORT INFORMATION
  Report Type: Spontaneous
  Country: US (occurrence: US)
  Receive Date: 20110722
  Receipt Date: 20130117
  Transmission Date: 20140127
  Serious: Yes (Hospitalization, Other)
  Sender: FDA-Public Use
  Company Number: US-ROCHE-790161

PATIENT
  Age: 54 Year
  Sex: Female

DRUGS (1)
  1. BONIVA [Suspect]
     Indication: OSTEOPOROSIS
     Route: 048
     Dates: start: 20070615, end: 200912

REACTIONS (5)
  - Femur fracture [Unknown]
  - Anxiety [Unknown]
  - Femur fracture [Unknown]
  - Osteoporosis [Unknown]
  - Osteoarthritis [Unknown]
